APPROVED DRUG PRODUCT: DARVON-N
Active Ingredient: PROPOXYPHENE NAPSYLATE
Strength: 50MG/5ML
Dosage Form/Route: SUSPENSION;ORAL
Application: N016861 | Product #001
Applicant: AAIPHARMA LLC
Approved: Approved Prior to Jan 1, 1982 | RLD: No | RS: No | Type: DISCN